FAERS Safety Report 4366323-X (Version None)
Quarter: 2004Q2

REPORT INFORMATION
  Report Type: 
  Country: None (occurrence: None)
  Receive Date: 20040520
  Receipt Date: 20040520
  Transmission Date: 20050107
  Serious: Yes (Hospitalization)
  Sender: FDA-Public Use
  Company Number: None

PATIENT
  Age: 76 Year
  Sex: Male
  Weight: 63.3675 kg

DRUGS (2)
  1. RISPERIDONE [Suspect]
     Indication: SCHIZOPHRENIA
     Dosage: 2 MG BID PO
     Route: 048
     Dates: start: 20031104, end: 20031129
  2. RISPERIDONE [Suspect]
     Indication: SCHIZOPHRENIA
     Dosage: 1 MG BID PO
     Route: 048
     Dates: start: 20031202, end: 20031204

REACTIONS (3)
  - CONVULSION [None]
  - HEART RATE DECREASED [None]
  - HYPOTHERMIA [None]
